FAERS Safety Report 25410606 (Version 1)
Quarter: 2025Q2

REPORT INFORMATION
  Report Type: Spontaneous
  Country: DE (occurrence: DE)
  Receive Date: 20250609
  Receipt Date: 20250609
  Transmission Date: 20250716
  Serious: Yes (Other)
  Sender: JOHNSON AND JOHNSON
  Company Number: None

PATIENT
  Age: 42 Year
  Sex: Female
  Weight: 64 kg

DRUGS (1)
  1. STELARA [Suspect]
     Active Substance: USTEKINUMAB
     Indication: Crohn^s disease
     Dosage: PLANNED UNTIL 2030-11-20
     Route: 058
     Dates: start: 20241211

REACTIONS (1)
  - Panniculitis [Recovered/Resolved]

NARRATIVE: CASE EVENT DATE: 20250401
